FAERS Safety Report 9176106 (Version 1)
Quarter: 2012Q4

REPORT INFORMATION
  Report Type: 
  Country: US (occurrence: US)
  Receive Date: 20120918
  Receipt Date: 20120918
  Transmission Date: 20130627
  Serious: Yes (Other)
  Sender: FDA-Public Use
  Company Number: US-RB-044402-12

PATIENT
  Age: 73 Year
  Sex: Male

DRUGS (4)
  1. MUCINEX DM [Suspect]
     Indication: COUGH
     Route: 048
     Dates: start: 20120905
  2. MUCINEX DM [Suspect]
     Indication: BRONCHIAL SECRETION RETENTION
     Route: 048
     Dates: start: 20120905
  3. CODEINE [Concomitant]
     Indication: COUGH
     Dosage: Last dosing possible prior night  05-sep-2012
  4. OMEPRAZOLE [Concomitant]
     Indication: PRODUCT USED FOR UNKNOWN INDICATION
     Dosage: Taken for the first time on 05/SEP/2012
     Dates: start: 20120905

REACTIONS (9)
  - Syncope [Recovered/Resolved]
  - Loss of consciousness [Recovered/Resolved]
  - Cold sweat [Recovered/Resolved]
  - Contusion [Recovered/Resolved]
  - Asthenia [Recovered/Resolved]
  - Dizziness [Not Recovered/Not Resolved]
  - Nausea [Recovered/Resolved]
  - Somnolence [Recovered/Resolved]
  - Dizziness [Recovered/Resolved]
